FAERS Safety Report 23649422 (Version 1)
Quarter: 2024Q1

REPORT INFORMATION
  Report Type: Spontaneous
  Country: DE (occurrence: DE)
  Receive Date: 20240319
  Receipt Date: 20240319
  Transmission Date: 20240409
  Serious: Yes (Hospitalization)
  Sender: FDA-Public Use
  Company Number: DE-BAYER-2024A036542

PATIENT
  Age: 72 Year
  Sex: Male

DRUGS (3)
  1. NUBEQA [Suspect]
     Active Substance: DAROLUTAMIDE
     Indication: Prostate cancer
     Dosage: 600 MG, QD
     Route: 048
     Dates: start: 20231207, end: 20240304
  2. TRENANTONE [Suspect]
     Active Substance: LEUPROLIDE ACETATE
     Indication: Prostate cancer
     Dosage: 11.75 MG, Q3MON
     Route: 058
     Dates: start: 20231115, end: 20240304
  3. TAXOTERE [Suspect]
     Active Substance: DOCETAXEL
     Indication: Prostate cancer
     Dosage: 95 MG, Q2WK
     Route: 042
     Dates: start: 20231214, end: 20240304

REACTIONS (4)
  - Extremity necrosis [Not Recovered/Not Resolved]
  - Erythema [Not Recovered/Not Resolved]
  - Peripheral swelling [Not Recovered/Not Resolved]
  - Off label use [None]

NARRATIVE: CASE EVENT DATE: 20231207
